FAERS Safety Report 7259087-3 (Version None)
Quarter: 2011Q1

REPORT INFORMATION
  Report Type: 
  Country: None (occurrence: None)
  Receive Date: 20110129
  Receipt Date: 20100812
  Transmission Date: 20110831
  Serious: No
  Sender: FDA-Public Use
  Company Number: US-ABBOTT-10P-163-0663485-00

PATIENT
  Age: 58 Year
  Sex: Female

DRUGS (10)
  1. ASACOL [Concomitant]
     Indication: CROHN'S DISEASE
  2. SELAXIN [Concomitant]
     Indication: FIBROMYALGIA
  3. PREMARIN [Concomitant]
     Indication: HORMONE REPLACEMENT THERAPY
  4. ZESTRIL [Concomitant]
     Indication: PRODUCT USED FOR UNKNOWN INDICATION
  5. PRILOSEC [Concomitant]
     Indication: PRODUCT USED FOR UNKNOWN INDICATION
  6. MAXZIDE [Concomitant]
     Indication: HYPERTENSION
  7. ADVAIR [Concomitant]
     Indication: ASTHMA
  8. VICODIN [Concomitant]
     Indication: PAIN
  9. HUMIRA [Suspect]
     Indication: RHEUMATOID ARTHRITIS
     Dates: start: 20100430, end: 20100812
  10. ALEGRA [Concomitant]
     Indication: HYPERSENSITIVITY

REACTIONS (1)
  - DRUG INEFFECTIVE [None]
